FAERS Safety Report 4280461-1 (Version None)
Quarter: 2004Q1

REPORT INFORMATION
  Report Type: 
  Country: None (occurrence: None)
  Receive Date: 20040128
  Receipt Date: 20031223
  Transmission Date: 20041129
  Serious: Yes (Hospitalization, Other)
  Sender: FDA-Public Use
  Company Number: PHBS2003CA14420

PATIENT
  Age: 83 Year
  Sex: Female

DRUGS (14)
  1. FAMVIR [Suspect]
     Indication: HERPES ZOSTER
     Dosage: 500 MG, TID
     Route: 048
     Dates: start: 20031216, end: 20031223
  2. COUMADIN [Suspect]
     Dosage: 4 MG, QD
     Route: 048
     Dates: end: 20031218
  3. CEPHALEXIN [Concomitant]
     Dosage: 500 MG, QID
     Route: 048
  4. CIPROFLOXACIN [Concomitant]
     Dosage: UNK, QHS LEFT EYE
  5. CIPROFLOXACIN [Concomitant]
     Dosage: 2 DRP, Q2H
  6. POLYSPORIN [Concomitant]
     Dosage: UNK, BID
  7. RISPERIDONE [Concomitant]
     Dosage: 250 UG, BID
     Route: 048
  8. SPIRONOLACTONE [Concomitant]
     Dosage: 25 MG, QD
     Route: 048
  9. ACETAMINOPHEN [Concomitant]
     Dosage: 1 G, Q6H/PRN
  10. LORAZEPAM [Concomitant]
     Dosage: 1 MG, QID/PRN
     Route: 048
  11. NITRO-DUR [Concomitant]
     Dosage: 1 PATCH Q AM OFF HS
     Route: 062
  12. RAMIPRIL [Concomitant]
  13. FUROSEMIDE [Concomitant]
  14. CEFAZOLIN [Concomitant]

REACTIONS (2)
  - DRUG INTERACTION [None]
  - INTERNATIONAL NORMALISED RATIO INCREASED [None]
